FAERS Safety Report 8319951-0 (Version None)
Quarter: 2012Q2

REPORT INFORMATION
  Report Type: 
  Country: None (occurrence: None)
  Receive Date: 20120427
  Receipt Date: 20120421
  Transmission Date: 20120825
  Serious: Yes (Other)
  Sender: FDA-Public Use
  Company Number: ES-ROCHE-1062508

PATIENT
  Age: 36 Year
  Sex: Female

DRUGS (1)
  1. TRASTUZUMAB [Suspect]
     Indication: BREAST CANCER

REACTIONS (1)
  - INTERSTITIAL LUNG DISEASE [None]
